FAERS Safety Report 16528662 (Version 2)
Quarter: 2019Q3

REPORT INFORMATION
  Report Type: Report from Study
  Country: GB (occurrence: GB)
  Receive Date: 20190703
  Receipt Date: 20190912
  Transmission Date: 20191004
  Serious: Yes (Hospitalization, Other)
  Sender: FDA-Public Use
  Company Number: GB-GLAXOSMITHKLINE-GB2019EME119127

PATIENT

DRUGS (1)
  1. MEPOLIZUMAB [Suspect]
     Active Substance: MEPOLIZUMAB
     Indication: ASTHMA
     Dosage: 100 MG, Z; EVERY 4 WEEKS
     Route: 058
     Dates: start: 20190314

REACTIONS (3)
  - Bedridden [Unknown]
  - Eye disorder [Unknown]
  - Retinal detachment [Unknown]
